FAERS Safety Report 12411940 (Version 1)
Quarter: 2016Q2

REPORT INFORMATION
  Report Type: Spontaneous
  Country: BR (occurrence: BR)
  Receive Date: 20160527
  Receipt Date: 20160527
  Transmission Date: 20160815
  Serious: Yes (Other)
  Sender: FDA-Public Use
  Company Number: BR-PFIZER INC-2016268015

PATIENT
  Age: 88 Year
  Sex: Female
  Weight: 69 kg

DRUGS (6)
  1. ULTRACET [Concomitant]
     Active Substance: ACETAMINOPHEN\TRAMADOL HYDROCHLORIDE
     Indication: PAIN IN EXTREMITY
  2. NAPRIX [Concomitant]
     Active Substance: RAMIPRIL
     Indication: HYPERTENSION
     Dosage: 1 DF,  1 TABLET IN THE MORNING
  3. MANIVASC [Concomitant]
     Active Substance: MANIDIPINE HYDROCHLORIDE
     Indication: HYPERTENSION
     Dosage: 1 DF, 1 TABLET AT NIGHT
  4. PROCIMAX [Concomitant]
     Active Substance: CITALOPRAM HYDROBROMIDE
     Indication: DEPRESSION
     Dosage: 1 DF,  1 TABLET PER DAY
  5. ULTRACET [Concomitant]
     Active Substance: ACETAMINOPHEN\TRAMADOL HYDROCHLORIDE
     Indication: ARTHRALGIA
     Dosage: 2 DF, 1 TABLET IN THE MORNING AND ONE AT NIGHT
  6. XALATAN [Suspect]
     Active Substance: LATANOPROST
     Indication: GLAUCOMA
     Dosage: 1 GTT, ONE DROP ON EACH EYE PER DAY
     Route: 047

REACTIONS (7)
  - Cyst [Not Recovered/Not Resolved]
  - Osteoarthritis [Recovering/Resolving]
  - Tremor [Not Recovered/Not Resolved]
  - Incorrect dose administered [Unknown]
  - Neuromyopathy [Not Recovered/Not Resolved]
  - Eye haemorrhage [Unknown]
  - Intestinal ulcer perforation [Recovered/Resolved]

NARRATIVE: CASE EVENT DATE: 2012
